FAERS Safety Report 17886060 (Version 1)
Quarter: 2020Q2

REPORT INFORMATION
  Report Type: Spontaneous
  Country: US (occurrence: US)
  Receive Date: 20200611
  Receipt Date: 20200611
  Transmission Date: 20200714
  Serious: No
  Sender: FDA-Public Use
  Company Number: US-AMGEN-USASP2020090217

PATIENT
  Age: 61 Year
  Sex: Female
  Weight: 99.77 kg

DRUGS (2)
  1. NEULASTA [Suspect]
     Active Substance: PEGFILGRASTIM
     Dosage: UNK
     Route: 065
  2. NEULASTA [Suspect]
     Active Substance: PEGFILGRASTIM
     Indication: NEUTROPENIA
     Dosage: UNK
     Route: 065

REACTIONS (9)
  - Application site erythema [Unknown]
  - Oropharyngeal spasm [Unknown]
  - Bone pain [Unknown]
  - Wrong technique in product usage process [Unknown]
  - Pain [Unknown]
  - Accidental exposure to product [Unknown]
  - Fatigue [Unknown]
  - Application site swelling [Unknown]
  - Toothache [Unknown]

NARRATIVE: CASE EVENT DATE: 2020
